FAERS Safety Report 12184385 (Version 3)
Quarter: 2019Q2

REPORT INFORMATION
  Report Type: Report from Study
  Country: US (occurrence: US)
  Receive Date: 20160316
  Receipt Date: 20190627
  Transmission Date: 20190711
  Serious: Yes (Other)
  Sender: FDA-Public Use
  Company Number: US-AMGEN-USASL2016002210

PATIENT
  Age: 63 Year
  Sex: Female

DRUGS (6)
  1. MAGNESIUM [Concomitant]
     Active Substance: MAGNESIUM
  2. CALCIUM [Concomitant]
     Active Substance: CALCIUM
  3. GABAPENTIN. [Concomitant]
     Active Substance: GABAPENTIN
  4. PROLIA [Suspect]
     Active Substance: DENOSUMAB
     Indication: OSTEOPOROSIS POSTMENOPAUSAL
     Dosage: 60 MILLIGRAM, Q6MO
     Route: 065
  5. TAMOXIFEN [Suspect]
     Active Substance: TAMOXIFEN
     Indication: PRODUCT USED FOR UNKNOWN INDICATION
     Dosage: UNK
     Route: 065
     Dates: end: 201411
  6. MULTIVITAMINS [Concomitant]
     Active Substance: VITAMINS

REACTIONS (10)
  - Insomnia [Unknown]
  - Joint surgery [Unknown]
  - Peripheral swelling [Unknown]
  - Product dose omission [Unknown]
  - Therapy non-responder [Unknown]
  - Arthralgia [Recovering/Resolving]
  - Mobility decreased [Recovering/Resolving]
  - Gait inability [Unknown]
  - Hip arthroplasty [Unknown]
  - Pain in extremity [Unknown]
